FAERS Safety Report 6241528-1 (Version None)
Quarter: 2009Q2

REPORT INFORMATION
  Report Type: 
  Country: None (occurrence: None)
  Receive Date: 20090623
  Receipt Date: 20040322
  Transmission Date: 20091009
  Serious: Yes (Life-Threatening, Hospitalization, Other)
  Sender: FDA-Public Use
  Company Number: BR-ROCHE-355750

PATIENT
  Sex: Male
  Weight: 61.2 kg

DRUGS (42)
  1. DACLIZUMAB [Suspect]
     Route: 042
     Dates: start: 20031016, end: 20031016
  2. DACLIZUMAB [Suspect]
     Route: 042
     Dates: start: 20031030, end: 20031211
  3. MYCOPHENOLATE MOFETIL [Suspect]
     Route: 048
     Dates: start: 20031015
  4. MYCOPHENOLATE MOFETIL [Suspect]
     Route: 048
     Dates: start: 20031211
  5. MYCOPHENOLATE MOFETIL [Suspect]
     Route: 048
     Dates: start: 20031216
  6. MYCOPHENOLATE MOFETIL [Suspect]
     Route: 048
     Dates: start: 20040119, end: 20040121
  7. MYCOPHENOLATE MOFETIL [Suspect]
     Route: 048
     Dates: start: 20040128
  8. MYCOPHENOLATE MOFETIL [Suspect]
     Route: 048
     Dates: start: 20040203, end: 20040206
  9. MYCOPHENOLATE MOFETIL [Suspect]
     Route: 048
     Dates: start: 20040816
  10. TACROLIMUS [Suspect]
     Route: 048
     Dates: start: 20031015
  11. TACROLIMUS [Suspect]
     Route: 048
     Dates: start: 20031022
  12. TACROLIMUS [Suspect]
     Route: 048
     Dates: start: 20031031
  13. TACROLIMUS [Suspect]
     Route: 048
     Dates: start: 20040119
  14. TACROLIMUS [Suspect]
     Route: 048
     Dates: start: 20040702, end: 20041014
  15. PREDNISONE [Suspect]
     Route: 048
     Dates: start: 20031015
  16. PREDNISONE [Suspect]
     Route: 048
     Dates: start: 20031110
  17. PREDNISONE [Suspect]
     Route: 048
     Dates: start: 20031113
  18. PREDNISONE [Suspect]
     Route: 048
     Dates: start: 20031118
  19. PREDNISONE [Suspect]
     Route: 048
     Dates: start: 20031127
  20. PREDNISONE [Suspect]
     Route: 048
     Dates: start: 20031204
  21. PREDNISONE [Suspect]
     Route: 048
     Dates: start: 20031211
  22. PREDNISONE [Suspect]
     Route: 048
     Dates: start: 20031230
  23. PREDNISONE [Suspect]
     Route: 048
     Dates: start: 20040106
  24. NIFEDIPINE [Concomitant]
     Route: 048
     Dates: start: 20031020
  25. SULFAMETHOXAZOLE AND TRIMETHOPRIM [Concomitant]
     Route: 048
     Dates: start: 20031019
  26. RANITIDINE [Concomitant]
     Route: 048
     Dates: start: 20031015
  27. PROPRANOLOL HYDROCHLORIDE [Concomitant]
     Route: 048
     Dates: start: 20031019
  28. HEMAX [Concomitant]
     Route: 058
     Dates: start: 20031211
  29. NORIPURUM [Concomitant]
     Route: 042
     Dates: start: 20031211
  30. METHYLPREDNISOLONE [Suspect]
     Route: 042
     Dates: start: 20031031, end: 20031102
  31. CAPTOPRIL [Concomitant]
     Route: 048
     Dates: start: 20040220
  32. CEFAZOLIN [Concomitant]
     Route: 042
     Dates: start: 20031016, end: 20031018
  33. ERITROPOIETIN [Concomitant]
     Route: 058
     Dates: start: 20031211, end: 20040315
  34. ERITROPOIETIN [Concomitant]
     Route: 058
     Dates: start: 20040316, end: 20040329
  35. ERITROPOIETIN [Concomitant]
     Route: 058
     Dates: start: 20040330
  36. FERROUS [Concomitant]
     Dosage: DRUG REPORTED AS FERROSUS HIDROXIDE
     Route: 042
     Dates: start: 20031211, end: 20040315
  37. FERROUS [Concomitant]
     Route: 042
     Dates: start: 20040316, end: 20040329
  38. FERROUS [Concomitant]
     Route: 042
     Dates: start: 20040330
  39. NEUPOGEN [Concomitant]
     Dosage: DRUG: FILGASTRINE. DOSE 30 MU ONCE DAILY
     Route: 058
     Dates: start: 20031216, end: 20031217
  40. GANCICLOVIR [Concomitant]
     Route: 042
     Dates: start: 20040107, end: 20040122
  41. HYPERIMMUNE GLOBULIN [Concomitant]
     Route: 042
     Dates: start: 20040220, end: 20040301
  42. LEVOFLOXACIN [Concomitant]
     Route: 048
     Dates: start: 20040130, end: 20040213

REACTIONS (3)
  - CYTOMEGALOVIRUS INFECTION [None]
  - HYPERTENSIVE ENCEPHALOPATHY [None]
  - PARVOVIRUS INFECTION [None]
